FAERS Safety Report 21216535 (Version 2)
Quarter: 2022Q3

REPORT INFORMATION
  Report Type: Spontaneous
  Country: CN (occurrence: CN)
  Receive Date: 20220816
  Receipt Date: 20220913
  Transmission Date: 20221027
  Serious: Yes (Other)
  Sender: FDA-Public Use
  Company Number: CN-AMGEN-CHNSP2022138480

PATIENT

DRUGS (8)
  1. EVOLOCUMAB [Suspect]
     Active Substance: EVOLOCUMAB
     Indication: Acute myocardial infarction
     Dosage: 140 MILLIGRAM
     Route: 058
  2. ATORVASTATIN [Concomitant]
     Active Substance: ATORVASTATIN
     Dosage: 20 MILLIGRAM
  3. ASPIRIN [Concomitant]
     Active Substance: ASPIRIN
     Dosage: 300 MILLIGRAM
  4. TICAGRELOR [Concomitant]
     Active Substance: TICAGRELOR
     Dosage: 180 MILLIGRAM
  5. CLOPIDOGREL [Concomitant]
     Active Substance: CLOPIDOGREL BISULFATE
     Dosage: 600 MILLIGRAM
  6. ROSUVASTATIN [Concomitant]
     Active Substance: ROSUVASTATIN
     Dosage: 10 MILLIGRAM
  7. HEPARIN [Concomitant]
     Active Substance: HEPARIN SODIUM
     Dosage: (80-100U/KG)
  8. BIVALIRUDIN [Concomitant]
     Active Substance: BIVALIRUDIN

REACTIONS (3)
  - Acute kidney injury [Unknown]
  - Therapeutic response unexpected [Unknown]
  - Blood creatinine increased [Unknown]
